FAERS Safety Report 9995315 (Version 1)
Quarter: 2014Q1

REPORT INFORMATION
  Report Type: Spontaneous
  Country: ES (occurrence: None)
  Receive Date: 20140307
  Receipt Date: 20140307
  Transmission Date: 20141002
  Serious: Yes (Other)
  Sender: FDA-Public Use
  Company Number: 2014/010

PATIENT
  Age: 87 Year
  Sex: Female

DRUGS (11)
  1. MEMANTINE [Suspect]
     Indication: DEMENTIA ALZHEIMER^S TYPE
     Dosage: 10 MG, 0-5 MG BID
  2. MEMANTINE [Suspect]
     Indication: DEMENTIA
     Dosage: 10 MG, 0-5 MG BID
  3. MEMANTINE [Suspect]
     Indication: ABNORMAL BEHAVIOUR
     Dosage: 10 MG, 0-5 MG BID
  4. LEVODOPA/CARBIDOPA (NO PREF.NAME) [Concomitant]
  5. FUROSEMIDE  (NO PREF NAME) [Concomitant]
  6. ENLAPRIL (NO PREF NAME) [Concomitant]
  7. OMPERAZOLE (NO PREF NAME) [Concomitant]
  8. QUETIAPINE (NO PREF NAME) [Concomitant]
  9. TRAZADONE (NO PREF NAME) [Concomitant]
  10. FORMOTEROL/BUDESONIDE (NO PREF. NAME) [Concomitant]
  11. TERBUTALINE (NO PREF.NAME) [Concomitant]

REACTIONS (1)
  - Pemphigoid [None]
